FAERS Safety Report 5276333-6 (Version None)
Quarter: 2007Q1

REPORT INFORMATION
  Report Type: 
  Country: None (occurrence: None)
  Receive Date: 20070326
  Receipt Date: 20070314
  Transmission Date: 20070707
  Serious: Yes (Other)
  Sender: FDA-Public Use
  Company Number: NL-PFIZER INC-2007020619

PATIENT
  Sex: Male
  Weight: 1.84 kg

DRUGS (6)
  1. NIFEDIPINE [Suspect]
     Dosage: DAILY DOSE:150MG
     Route: 064
  2. FENOTEROL [Suspect]
  3. INDOMETHACIN [Suspect]
  4. FUROSEMIDE [Suspect]
  5. ANTIBIOTICS [Suspect]
  6. CORTICOSTEROIDS [Suspect]

REACTIONS (3)
  - APGAR SCORE LOW [None]
  - DRUG EXPOSURE DURING PREGNANCY [None]
  - PREMATURE BABY [None]
